FAERS Safety Report 8845611 (Version 1)
Quarter: 2012Q4

REPORT INFORMATION
  Report Type: 
  Country: US (occurrence: US)
  Receive Date: 20121017
  Receipt Date: 20121017
  Transmission Date: 20130627
  Serious: Yes (Death, Other)
  Sender: FDA-Public Use
  Company Number: US-ROCHE-1120080

PATIENT
  Sex: Female

DRUGS (1)
  1. NUTROPIN [Suspect]
     Indication: HYPOPITUITARISM
     Route: 065

REACTIONS (4)
  - Death [Fatal]
  - Neurodegenerative disorder [Unknown]
  - Convulsion [Unknown]
  - Brain stem syndrome [Unknown]
